FAERS Safety Report 17026883 (Version 1)
Quarter: 2019Q4

REPORT INFORMATION
  Report Type: Spontaneous
  Country: US (occurrence: US)
  Receive Date: 20191112
  Receipt Date: 20191112
  Transmission Date: 20200122
  Serious: Yes (Hospitalization)
  Sender: FDA-Public Use
  Company Number: None

PATIENT
  Age: 48 Year
  Sex: Male
  Weight: 83.9 kg

DRUGS (5)
  1. NERATINIB [Suspect]
     Active Substance: NERATINIB
     Indication: GLIOBLASTOMA MULTIFORME
     Route: 048
     Dates: start: 20191101, end: 20191104
  2. KEPPRA [Concomitant]
     Active Substance: LEVETIRACETAM
     Dates: start: 20190714
  3. VIMPAT [Concomitant]
     Active Substance: LACOSAMIDE
     Dates: start: 20190812
  4. AMLODIPINE [Concomitant]
     Active Substance: AMLODIPINE BESYLATE
     Dates: start: 20190628
  5. ATIVAN [Concomitant]
     Active Substance: LORAZEPAM
     Dates: start: 20190805

REACTIONS (1)
  - Seizure [None]

NARRATIVE: CASE EVENT DATE: 20191112
